FAERS Safety Report 18081066 (Version 1)
Quarter: 2020Q3

REPORT INFORMATION
  Report Type: Spontaneous
  Country: US (occurrence: US)
  Receive Date: 20200728
  Receipt Date: 20200728
  Transmission Date: 20201103
  Serious: No
  Sender: FDA-Public Use
  Company Number: US-PFIZER INC-2020284906

PATIENT
  Age: 59 Year
  Sex: Female
  Weight: 77.11 kg

DRUGS (1)
  1. IBUPROFEN. [Suspect]
     Active Substance: IBUPROFEN
     Indication: ARTHRITIS
     Dosage: 400 MG, 2X/DAY (TWO TABLETS TWICE DAILY; MOSTLY AT NIGHT FOR BED)
     Dates: start: 2020

REACTIONS (2)
  - Abdominal pain upper [Unknown]
  - Gastric disorder [Unknown]
